FAERS Safety Report 8402550-X (Version None)
Quarter: 2012Q2

REPORT INFORMATION
  Report Type: 
  Country: None (occurrence: None)
  Receive Date: 20120601
  Receipt Date: 20120530
  Transmission Date: 20120825
  Serious: Yes (Hospitalization)
  Sender: FDA-Public Use
  Company Number: PHHY2012AU043973

PATIENT
  Sex: Female

DRUGS (5)
  1. ATENOLOL [Concomitant]
     Indication: BLOOD PRESSURE INCREASED
     Dosage: 50 MG, NOCTE
     Route: 048
  2. CLOZARIL [Suspect]
     Dosage: 750 MG, UNK
  3. TIOTROPIUM BROMIDE [Concomitant]
     Indication: CHRONIC OBSTRUCTIVE PULMONARY DISEASE
     Dosage: 18 UG, UNK
  4. CLOZARIL [Suspect]
     Indication: SCHIZOPHRENIA
     Dosage: 750 MG, UNK
     Dates: start: 20070103, end: 20120519
  5. FLUTICASONE PROPIONATE/SALMETEROL [Concomitant]
     Indication: CHRONIC OBSTRUCTIVE PULMONARY DISEASE
     Dosage: 500/50, 2 PUFFS BD

REACTIONS (6)
  - DELUSION [None]
  - IMPAIRED SELF-CARE [None]
  - DRUG LEVEL BELOW THERAPEUTIC [None]
  - PARANOIA [None]
  - SCHIZOPHRENIA [None]
  - SCHIZOPHRENIA, DISORGANISED TYPE [None]
